FAERS Safety Report 7525756-0 (Version None)
Quarter: 2011Q2

REPORT INFORMATION
  Report Type: 
  Country: None (occurrence: None)
  Receive Date: 20110606
  Receipt Date: 20110603
  Transmission Date: 20111010
  Serious: Yes (Death)
  Sender: FDA-Public Use
  Company Number: PHHY2011BR09975

PATIENT
  Sex: Female

DRUGS (1)
  1. TEGRETOL-XR [Suspect]
     Dosage: 200 MG, FOR 8 YEARS
     Route: 048

REACTIONS (2)
  - DEMENTIA ALZHEIMER'S TYPE [None]
  - PNEUMONIA [None]
